FAERS Safety Report 24255369 (Version 5)
Quarter: 2025Q2

REPORT INFORMATION
  Report Type: Spontaneous
  Country: US (occurrence: US)
  Receive Date: 20240827
  Receipt Date: 20250620
  Transmission Date: 20250716
  Serious: Yes (Other)
  Sender: SANOFI AVENTIS
  Company Number: US-SA-2024SA170717

PATIENT
  Age: 56 Year
  Sex: Female

DRUGS (2)
  1. DUPIXENT [Suspect]
     Active Substance: DUPILUMAB
     Indication: Eczema
     Dosage: 300 MG, QOW
     Route: 058
     Dates: start: 20240506, end: 2024
  2. DUPIXENT [Suspect]
     Active Substance: DUPILUMAB
     Dates: start: 2024

REACTIONS (10)
  - Cataract [Unknown]
  - Ovarian cyst [Unknown]
  - Ovarian enlargement [Unknown]
  - Depression [Unknown]
  - Rebound eczema [Recovering/Resolving]
  - Product dose omission in error [Unknown]
  - Dry eye [Unknown]
  - Eczema [Recovering/Resolving]
  - Pruritus [Not Recovered/Not Resolved]
  - Incorrect dose administered [Unknown]

NARRATIVE: CASE EVENT DATE: 20240101
